FAERS Safety Report 9289270 (Version 2)
Quarter: 2013Q2

REPORT INFORMATION
  Report Type: Spontaneous
  Country: GB (occurrence: None)
  Receive Date: 20130510
  Receipt Date: 20130516
  Transmission Date: 20140414
  Serious: Yes (Other)
  Sender: FDA-Public Use
  Company Number: AUR-APL-2013-03855

PATIENT
  Age: 43 Year
  Sex: Male
  Weight: 77.7 kg

DRUGS (7)
  1. QUETIAPINE (QUETIAPINE) (QUETIAPINE) [Suspect]
     Indication: PRODUCT USED FOR UNKNOWN INDICATION
     Dates: start: 20130218
  2. LORAZEPAM (LORAZEPAM) [Concomitant]
  3. MIRTAZAPINE (MIRTAZAPINE) [Concomitant]
  4. OMEPRAZOLE (OMEPRAZOLE) [Concomitant]
  5. PENTASA (MESALAZINE) [Concomitant]
  6. VENLALIC XL (VENLAFAXINE HYDROCHLORIDE) [Concomitant]
  7. ZOPICLONE (ZOPICLONE) [Concomitant]

REACTIONS (3)
  - Sedation [None]
  - Poor quality sleep [None]
  - Bradyphrenia [None]
